FAERS Safety Report 6915168-2 (Version None)
Quarter: 2010Q3

REPORT INFORMATION
  Report Type: 
  Country: None (occurrence: None)
  Receive Date: 20100805
  Receipt Date: 20100805
  Transmission Date: 20110219
  Serious: Yes (Life-Threatening, Hospitalization, Disabling)
  Sender: FDA-Public Use
  Company Number: None

PATIENT
  Age: 81 Year
  Sex: Male
  Weight: 79.3795 kg

DRUGS (2)
  1. DAPTOMYCIN [Suspect]
     Indication: DEVICE RELATED INFECTION
     Dosage: IV INFUSION DAILY
     Route: 042
     Dates: start: 20100706, end: 20100725
  2. DAPTOMYCIN [Suspect]
     Indication: STAPHYLOCOCCAL INFECTION
     Dosage: IV INFUSION DAILY
     Route: 042
     Dates: start: 20100706, end: 20100725

REACTIONS (1)
  - EOSINOPHILIC PNEUMONIA [None]
